FAERS Safety Report 6686098-9 (Version None)
Quarter: 2010Q2

REPORT INFORMATION
  Report Type: 
  Country: None (occurrence: None)
  Receive Date: 20100414
  Receipt Date: 20100407
  Transmission Date: 20101027
  Serious: Yes (Hospitalization)
  Sender: FDA-Public Use
  Company Number: TCI2009A04361

PATIENT
  Age: 76 Year
  Sex: Female

DRUGS (7)
  1. ACTOS [Suspect]
     Indication: TYPE 2 DIABETES MELLITUS
     Dosage: 15 MG (15 MG,1 IN 1 D) PER ORAL
     Route: 048
     Dates: start: 20080331, end: 20090420
  2. BASEN OD (VOGLIBOSE) [Concomitant]
  3. BIGUANDIES [Concomitant]
  4. PARIET (RABEPROZOLE SODIUM) [Concomitant]
  5. CRESTOR [Concomitant]
  6. LOSARTAN POTASSIUM [Concomitant]
  7. SULFONAMIDES, UREA DERIVATIVES [Concomitant]

REACTIONS (10)
  - ANGER [None]
  - ANXIETY [None]
  - ATRIAL FIBRILLATION [None]
  - BLOOD PRESSURE INCREASED [None]
  - CARDIAC FAILURE CHRONIC [None]
  - DECREASED APPETITE [None]
  - PARANOIA [None]
  - PSYCHIATRIC SYMPTOM [None]
  - PULMONARY CONGESTION [None]
  - WEIGHT DECREASED [None]
